FAERS Safety Report 11198638 (Version 1)
Quarter: 2015Q2

REPORT INFORMATION
  Report Type: Spontaneous
  Country: US (occurrence: None)
  Receive Date: 20150603
  Receipt Date: 20150603
  Transmission Date: 20150821
  Serious: No
  Sender: FDA-Public Use
  Company Number: US-MDCO-15-00171

PATIENT
  Age: 83 Year
  Sex: Female

DRUGS (1)
  1. ORBACTIV [Suspect]
     Active Substance: ORITAVANCIN
     Indication: ENDOCARDITIS
     Dosage: 1 IN 1 WK

REACTIONS (2)
  - Off label use [None]
  - No adverse event [None]

NARRATIVE: CASE EVENT DATE: 201502
